FAERS Safety Report 15288807 (Version 2)
Quarter: 2018Q3

REPORT INFORMATION
  Report Type: Spontaneous
  Country: FR (occurrence: FR)
  Receive Date: 20180817
  Receipt Date: 20180817
  Transmission Date: 20181010
  Serious: Yes (Hospitalization, Other)
  Sender: FDA-Public Use
  Company Number: PHHY2017FR204500

PATIENT

DRUGS (10)
  1. ZELITREX [Concomitant]
     Active Substance: VALACYCLOVIR HYDROCHLORIDE
     Indication: ANTIVIRAL TREATMENT
     Dosage: 1 G, QD
     Route: 065
     Dates: start: 20150905, end: 20160407
  2. CICLOSPORIN [Suspect]
     Active Substance: CYCLOSPORINE
     Indication: STEM CELL TRANSPLANT
     Dosage: 180 MG, QD
     Route: 042
     Dates: start: 20150917, end: 20160218
  3. SOLU?MEDROL [Concomitant]
     Active Substance: METHYLPREDNISOLONE SODIUM SUCCINATE
     Indication: STEROID THERAPY
     Dosage: 54 MG, UNK
     Route: 042
     Dates: start: 20150910, end: 20151013
  4. HEPARIN [Suspect]
     Active Substance: HEPARIN SODIUM
     Indication: PROPHYLAXIS
     Dosage: 5400 IU, QD
     Route: 042
     Dates: start: 20150905, end: 20151009
  5. NOXAFIL [Concomitant]
     Active Substance: POSACONAZOLE
     Indication: ANTIFUNGAL TREATMENT
     Dosage: 300 MG, QD
     Route: 042
     Dates: start: 20151017, end: 20160301
  6. AMOXICILLIN. [Concomitant]
     Active Substance: AMOXICILLIN
     Indication: ANTIBIOTIC THERAPY
     Dosage: 1 G, QD
     Route: 065
     Dates: start: 20150922, end: 20160812
  7. INEXIUM [Concomitant]
     Active Substance: ESOMEPRAZOLE
     Indication: DRUG THERAPY
     Dosage: 40 MG, QD
     Route: 065
  8. AMLOR [Concomitant]
     Active Substance: AMLODIPINE BESYLATE
     Indication: HYPOTENSION
     Dosage: 10 MG, QD
     Route: 048
     Dates: start: 20150923, end: 20151017
  9. DEFITELIO [Suspect]
     Active Substance: DEFIBROTIDE SODIUM
     Indication: PROPHYLAXIS
     Dosage: 1360 MG,
     Route: 042
     Dates: start: 20150905, end: 20151013
  10. LUTENYL [Concomitant]
     Active Substance: NOMEGESTROL ACETATE
     Indication: CONTRACEPTION
     Dosage: 10 MG, QD
     Route: 048

REACTIONS (2)
  - BK virus infection [Recovered/Resolved with Sequelae]
  - Cystitis haemorrhagic [Recovered/Resolved with Sequelae]

NARRATIVE: CASE EVENT DATE: 20151007
